FAERS Safety Report 19931227 (Version 2)
Quarter: 2022Q1

REPORT INFORMATION
  Report Type: Spontaneous
  Country: US (occurrence: US)
  Receive Date: 20211007
  Receipt Date: 20220104
  Transmission Date: 20220423
  Serious: No
  Sender: FDA-Public Use
  Company Number: US-KARYOPHARM-2021KPT001049

PATIENT

DRUGS (5)
  1. XPOVIO [Suspect]
     Active Substance: SELINEXOR
     Indication: Plasma cell myeloma
     Dosage: 80 MG, 2X/WEEK
     Route: 048
     Dates: start: 20210727, end: 202108
  2. XPOVIO [Suspect]
     Active Substance: SELINEXOR
     Dosage: 100 MG, WEEKLY
     Route: 048
     Dates: start: 20210909
  3. ELIQUIS [Concomitant]
     Active Substance: APIXABAN
     Dosage: 5 MG
  4. ELIQUIS [Concomitant]
     Active Substance: APIXABAN
     Dosage: 2.5 MG
  5. DEXAMETHASONE [Concomitant]
     Active Substance: DEXAMETHASONE
     Dosage: 10 MG, 2X/WEEK

REACTIONS (12)
  - Poor quality sleep [Not Recovered/Not Resolved]
  - Abdominal discomfort [Recovered/Resolved]
  - Tremor [Unknown]
  - Insomnia [Not Recovered/Not Resolved]
  - Renal function test abnormal [Unknown]
  - Logorrhoea [Unknown]
  - Nausea [Unknown]
  - Diarrhoea [Recovering/Resolving]
  - Fatigue [Unknown]
  - Constipation [Unknown]
  - Anaemia [Recovering/Resolving]
  - Drug ineffective [Unknown]

NARRATIVE: CASE EVENT DATE: 20210101
